FAERS Safety Report 4756385-X (Version None)
Quarter: 2005Q3

REPORT INFORMATION
  Report Type: 
  Country: None (occurrence: None)
  Receive Date: 20050830
  Receipt Date: 20050613
  Transmission Date: 20060218
  Serious: No
  Sender: FDA-Public Use
  Company Number: US-GLAXOSMITHKLINE-A0562418A

PATIENT
  Age: 58 Year
  Sex: Female

DRUGS (8)
  1. WELLBUTRIN XL [Suspect]
     Indication: DEPRESSION
     Dosage: 150MG PER DAY
     Route: 048
     Dates: start: 20050613
  2. CHLORAZEPAM [Concomitant]
  3. ZETIA [Concomitant]
  4. TIZANIDINE HCL [Concomitant]
  5. PRAVACHOL [Concomitant]
  6. DIFLUNISAL [Concomitant]
  7. UNKNOWN MEDICATION [Concomitant]
  8. NEURONTIN [Concomitant]

REACTIONS (7)
  - DIZZINESS [None]
  - DRY MOUTH [None]
  - NERVOUSNESS [None]
  - SENSORY DISTURBANCE [None]
  - SOMNOLENCE [None]
  - SPEECH DISORDER [None]
  - TREMOR [None]
